FAERS Safety Report 12499253 (Version 1)
Quarter: 2016Q2

REPORT INFORMATION
  Report Type: Spontaneous
  Country: None (occurrence: None)
  Receive Date: 20160624
  Receipt Date: 20160624
  Transmission Date: 20160815
  Serious: Yes (Life-Threatening, Hospitalization, Other)
  Sender: FDA-Public Use
  Company Number: None

PATIENT

DRUGS (3)
  1. DAILY VITAMIN [Concomitant]
     Active Substance: VITAMINS
  2. LEVAQUIN [Suspect]
     Active Substance: LEVOFLOXACIN
     Indication: PNEUMONIA
     Dosage: LEVOFLOXACIN?750 MG?10 PILLS, 1 DAILY, BY MOUTH
     Route: 048
     Dates: start: 20160405, end: 20160410
  3. CULTURIELLE PROBIOTIC [Concomitant]

REACTIONS (12)
  - Nausea [None]
  - Asthenia [None]
  - Myalgia [None]
  - Pneumonia [None]
  - Pain [None]
  - Muscular weakness [None]
  - Palpitations [None]
  - Cough [None]
  - Irritability [None]
  - Arthralgia [None]
  - Confusional state [None]
  - Dizziness [None]

NARRATIVE: CASE EVENT DATE: 20160406
